FAERS Safety Report 4908635-4 (Version None)
Quarter: 2006Q1

REPORT INFORMATION
  Report Type: 
  Country: None (occurrence: None)
  Receive Date: 20060210
  Receipt Date: 20050923
  Transmission Date: 20060701
  Serious: No
  Sender: FDA-Public Use
  Company Number: US-GLAXOSMITHKLINE-A0575698A

PATIENT
  Age: 62 Year
  Sex: Female

DRUGS (5)
  1. PAXIL CR [Suspect]
     Dosage: 25MG PER DAY
     Route: 048
     Dates: start: 20050912
  2. DILTIAZEM HCL [Concomitant]
  3. NEXIUM [Concomitant]
  4. AMBIEN [Concomitant]
  5. PAXIL [Concomitant]
     Dosage: 40MG PER DAY
     Route: 048
     Dates: start: 19940101, end: 20050912

REACTIONS (5)
  - ANXIETY [None]
  - DEPRESSION [None]
  - DIZZINESS [None]
  - DRUG INEFFECTIVE [None]
  - NIGHTMARE [None]
